FAERS Safety Report 18387659 (Version 1)
Quarter: 2020Q4

REPORT INFORMATION
  Report Type: Spontaneous
  Country: US (occurrence: US)
  Receive Date: 20201015
  Receipt Date: 20201015
  Transmission Date: 20210114
  Serious: No
  Sender: FDA-Public Use
  Company Number: US-CASPER PHARMA LLC-2020CAS000078

PATIENT

DRUGS (1)
  1. ANTIVERT [Suspect]
     Active Substance: MECLIZINE HYDROCHLORIDE
     Indication: VERTIGO POSITIONAL
     Dosage: UNK
     Route: 065

REACTIONS (1)
  - Drug hypersensitivity [Unknown]
